FAERS Safety Report 9222345 (Version 2)
Quarter: 2013Q2

REPORT INFORMATION
  Report Type: Spontaneous
  Country: US (occurrence: US)
  Receive Date: 20130410
  Receipt Date: 20130522
  Transmission Date: 20140414
  Serious: Yes (Death, Other)
  Sender: FDA-Public Use
  Company Number: US-TEVA-396817USA

PATIENT
  Sex: Female

DRUGS (6)
  1. CLARAVIS [Suspect]
     Route: 048
     Dates: start: 201004, end: 201301
  2. MYORISAN [Suspect]
     Dates: start: 20130215
  3. AMNESTEEM [Suspect]
     Dates: start: 200607, end: 200707
  4. PREDNISONE [Concomitant]
  5. METHOTREXATE [Concomitant]
  6. STELLARA [Concomitant]

REACTIONS (6)
  - Malaise [Fatal]
  - Pneumonia streptococcal [Fatal]
  - Pneumocystis jirovecii pneumonia [Fatal]
  - Acute respiratory distress syndrome [Fatal]
  - Septic shock [Unknown]
  - Immunosuppression [Unknown]
